FAERS Safety Report 21504247 (Version 3)
Quarter: 2022Q4

REPORT INFORMATION
  Report Type: Spontaneous
  Country: US (occurrence: US)
  Receive Date: 20221025
  Receipt Date: 20221220
  Transmission Date: 20230112
  Serious: Yes (Hospitalization)
  Sender: FDA-Public Use
  Company Number: US-BRISTOL-MYERS SQUIBB COMPANY-2022-126085

PATIENT
  Age: 76 Year
  Sex: Female

DRUGS (2)
  1. POMALYST [Suspect]
     Active Substance: POMALIDOMIDE
     Indication: Plasma cell myeloma
     Dosage: FREQUENCY: TAKE 1 CAP BY MOUTH WHOLE WITHOUT FOOD 2 HR BEFORE OR AFTER A MEAL AT THE SAME TIME DAILY
     Route: 048
     Dates: start: 20190926
  2. POMALYST [Suspect]
     Active Substance: POMALIDOMIDE
     Dosage: FREQUENCY: TAKE 1 CAP BY MOUTH WHOLE WITHOUT FOOD 2 HR BEFORE OR AFTER A MEAL AT THE SAME TIME DAILY
     Route: 048

REACTIONS (2)
  - Hypervolaemia [Unknown]
  - Lymphoedema [Unknown]
